FAERS Safety Report 10382513 (Version 1)
Quarter: 2014Q3

REPORT INFORMATION
  Report Type: Spontaneous
  Country: US (occurrence: US)
  Receive Date: 20140813
  Receipt Date: 20140813
  Transmission Date: 20150326
  Serious: Yes (Other)
  Sender: FDA-Public Use
  Company Number: US-JNJFOC-20140811447

PATIENT
  Age: 84 Year
  Sex: Female
  Weight: 54 kg

DRUGS (7)
  1. LAMICTAL [Concomitant]
     Active Substance: LAMOTRIGINE
     Indication: MOOD SWINGS
  2. CLONAZEPAM. [Concomitant]
     Active Substance: CLONAZEPAM
  3. INDERAL [Concomitant]
     Active Substance: PROPRANOLOL HYDROCHLORIDE
  4. IMBRUVICA [Suspect]
     Active Substance: IBRUTINIB
     Indication: CHRONIC LYMPHOCYTIC LEUKAEMIA
     Route: 048
     Dates: start: 20140801
  5. CELEXA [Concomitant]
     Active Substance: CITALOPRAM HYDROBROMIDE
  6. OMEPRAZOLE. [Concomitant]
     Active Substance: OMEPRAZOLE
  7. ESTRACE [Concomitant]
     Active Substance: ESTRADIOL

REACTIONS (3)
  - Nausea [Recovered/Resolved]
  - Constipation [Recovered/Resolved]
  - Loss of consciousness [Recovered/Resolved]

NARRATIVE: CASE EVENT DATE: 20140801
